FAERS Safety Report 23336984 (Version 2)
Quarter: 2024Q1

REPORT INFORMATION
  Report Type: Report from Study
  Country: IT (occurrence: IT)
  Receive Date: 20231226
  Receipt Date: 20240307
  Transmission Date: 20240410
  Serious: Yes (Other)
  Sender: FDA-Public Use
  Company Number: None

PATIENT

DRUGS (9)
  1. PEGASPARGASE [Suspect]
     Active Substance: PEGASPARGASE
     Indication: B-cell type acute leukaemia
     Dosage: 2500 IU
     Route: 042
     Dates: start: 20231106, end: 20231106
  2. PEGASPARGASE [Suspect]
     Active Substance: PEGASPARGASE
     Dosage: 2500 IU
     Route: 042
     Dates: start: 20231120, end: 20231120
  3. DAUNORUBICIN [Suspect]
     Active Substance: DAUNORUBICIN
     Indication: B-cell type acute leukaemia
     Dosage: 30 MG, QD ON DATE 01, 08, 16, 23/11/2023
     Route: 042
     Dates: start: 20231101, end: 20231123
  4. VINCRISTINE [Suspect]
     Active Substance: VINCRISTINE
     Indication: B-cell type acute leukaemia
     Dosage: 1.5 MG, QD, ON DATES 01. 08. 16 AND 23/11/23
     Route: 042
     Dates: start: 20231101, end: 20231123
  5. PREDNISONE [Concomitant]
     Active Substance: PREDNISONE
     Indication: B-cell type acute leukaemia
     Dosage: 20 MG, TID
     Route: 065
     Dates: start: 20231025, end: 20231121
  6. PREDNISONE [Concomitant]
     Active Substance: PREDNISONE
     Dosage: 15 MG, QD
     Route: 065
     Dates: start: 20231122, end: 20231124
  7. PREDNISONE [Concomitant]
     Active Substance: PREDNISONE
     Dosage: 7.5 MG, QD
     Route: 065
     Dates: start: 20231128, end: 20231130
  8. PANTOPRAZOLE SODIUM [Concomitant]
     Active Substance: PANTOPRAZOLE SODIUM
     Indication: Prophylaxis against gastrointestinal ulcer
     Dosage: 20 MG, QD
     Route: 042
     Dates: start: 20231025, end: 20231103
  9. ESOMEPRAZOLE [Concomitant]
     Active Substance: ESOMEPRAZOLE
     Indication: Prophylaxis against gastrointestinal ulcer
     Dosage: 20 MG, QD
     Route: 048
     Dates: start: 20231104, end: 20231130

REACTIONS (4)
  - Neutropenia [Recovered/Resolved]
  - Leukopenia [Recovered/Resolved]
  - Pain in extremity [Recovered/Resolved]
  - Stomatitis [Recovered/Resolved]

NARRATIVE: CASE EVENT DATE: 20231106
